FAERS Safety Report 10032384 (Version 1)
Quarter: 2014Q1

REPORT INFORMATION
  Report Type: Report from Study
  Country: US (occurrence: US)
  Receive Date: 20140324
  Receipt Date: 20140324
  Transmission Date: 20141002
  Serious: Yes (Other)
  Sender: FDA-Public Use
  Company Number: US-SA-2014SA028709

PATIENT
  Age: 49 Year
  Sex: Female
  Weight: 63.5 kg

DRUGS (3)
  1. AUBAGIO [Suspect]
     Indication: MULTIPLE SCLEROSIS
     Route: 048
     Dates: start: 20140221, end: 20140226
  2. CLONAZEPAM [Concomitant]
     Indication: MULTIPLE SCLEROSIS
  3. CITALOPRAM [Concomitant]
     Indication: DEPRESSION

REACTIONS (10)
  - Hypersensitivity [Recovering/Resolving]
  - Swollen tongue [Recovering/Resolving]
  - Pharyngeal oedema [Recovering/Resolving]
  - Throat tightness [Recovering/Resolving]
  - Tongue disorder [Recovering/Resolving]
  - Pain [Recovered/Resolved]
  - Blister [Recovered/Resolved]
  - Influenza like illness [Recovered/Resolved]
  - Diarrhoea [Recovered/Resolved]
  - Multiple sclerosis relapse [Recovered/Resolved]
